FAERS Safety Report 12919642 (Version 1)
Quarter: 2016Q4

REPORT INFORMATION
  Report Type: Spontaneous
  Country: GB (occurrence: GB)
  Receive Date: 20161108
  Receipt Date: 20161108
  Transmission Date: 20170207
  Serious: Yes (Hospitalization, Other)
  Sender: FDA-Public Use
  Company Number: GB-009507513-1511GBR002348

PATIENT
  Age: 45 Year
  Sex: Female

DRUGS (8)
  1. POLYETHYLENE GLYCOL 3350. [Suspect]
     Active Substance: POLYETHYLENE GLYCOL 3350
     Dosage: UNK, QD
     Route: 048
  2. CLONAZEPAM. [Suspect]
     Active Substance: CLONAZEPAM
     Dosage: UNK
     Route: 048
  3. OMEPRAZOLE. [Suspect]
     Active Substance: OMEPRAZOLE
     Dosage: 20 MG, QD
     Route: 048
  4. ZOLPIDEM [Suspect]
     Active Substance: ZOLPIDEM\ZOLPIDEM TARTRATE
     Dosage: UNK UNK, QD
     Route: 048
  5. ABAC LZ [Suspect]
     Active Substance: ABACAVIR SULFATE\LAMIVUDINE\ZIDOVUDINE
     Dosage: UNK, BID
     Route: 048
  6. KADIAN [Suspect]
     Active Substance: MORPHINE SULFATE
     Dosage: 70 MG, QD
     Route: 048
  7. INTRON A [Suspect]
     Active Substance: INTERFERON ALFA-2B
     Dosage: UNK
     Route: 058
  8. POTASSIUM CHLORIDE. [Suspect]
     Active Substance: POTASSIUM CHLORIDE
     Dosage: UNK
     Route: 048

REACTIONS (13)
  - Prothrombin level decreased [Unknown]
  - Disseminated intravascular coagulation [Unknown]
  - Hepatitis B surface antibody positive [Unknown]
  - Coagulation factor X level decreased [Unknown]
  - Hepatic failure [Unknown]
  - Coagulation factor V level decreased [Unknown]
  - Fibrinolysis [Unknown]
  - Coagulation factor VII level decreased [Unknown]
  - Hepatic steatosis [Unknown]
  - Hepatitis B core antibody positive [Unknown]
  - Anaemia [Unknown]
  - Coagulation time prolonged [Unknown]
  - Mean cell volume decreased [Unknown]
